FAERS Safety Report 22694258 (Version 2)
Quarter: 2023Q4

REPORT INFORMATION
  Report Type: Report from Study
  Country: US (occurrence: US)
  Receive Date: 20230711
  Receipt Date: 20231226
  Transmission Date: 20240110
  Serious: Yes (Hospitalization, Other)
  Sender: FDA-Public Use
  Company Number: US-ABBVIE-5321215

PATIENT
  Sex: Female

DRUGS (1)
  1. HUMIRA [Suspect]
     Active Substance: ADALIMUMAB
     Indication: Rheumatoid arthritis
     Dosage: FORM STRENGTH: 40 MILLIGRAM?CITRATE FREE
     Route: 058
     Dates: start: 20180202

REACTIONS (7)
  - Infected skin ulcer [Recovered/Resolved]
  - Wound infection [Unknown]
  - Scleroderma [Unknown]
  - Tympanic membrane perforation [Unknown]
  - Arthralgia [Not Recovered/Not Resolved]
  - Otorrhoea [Unknown]
  - Wound secretion [Recovered/Resolved]
